FAERS Safety Report 11358159 (Version 1)
Quarter: 2015Q3

REPORT INFORMATION
  Report Type: Spontaneous
  Country: US (occurrence: US)
  Receive Date: 20150803
  Receipt Date: 20150803
  Transmission Date: 20151125
  Serious: No
  Sender: FDA-Public Use
  Company Number: US-ELI_LILLY_AND_COMPANY-US200803002615

PATIENT
  Sex: Male
  Weight: 65.76 kg

DRUGS (3)
  1. STRATTERA [Suspect]
     Active Substance: ATOMOXETINE HYDROCHLORIDE
     Indication: ATTENTION DEFICIT/HYPERACTIVITY DISORDER
     Dosage: 25 MG, 2/D
     Dates: end: 20080304
  2. STRATTERA [Suspect]
     Active Substance: ATOMOXETINE HYDROCHLORIDE
     Dosage: 40 MG, EACH MORNING
     Dates: start: 20080305
  3. PSYCHOSTIMULANTS AND NOOTROPICS [Concomitant]

REACTIONS (3)
  - Weight increased [Recovered/Resolved]
  - Abdominal discomfort [Recovered/Resolved]
  - Disturbance in attention [Recovering/Resolving]
